FAERS Safety Report 9613507 (Version 2)
Quarter: 2013Q4

REPORT INFORMATION
  Report Type: Spontaneous
  Country: US (occurrence: US)
  Receive Date: 20131010
  Receipt Date: 20131010
  Transmission Date: 20140711
  Serious: Yes (Other)
  Sender: FDA-Public Use
  Company Number: US-GILEAD-2012-0062806

PATIENT
  Sex: Female

DRUGS (1)
  1. LETAIRIS [Suspect]
     Indication: PULMONARY ARTERIAL HYPERTENSION
     Dosage: 10 MG, UNK
     Route: 048
     Dates: start: 20120322

REACTIONS (8)
  - Chronic obstructive pulmonary disease [Unknown]
  - Therapy change [Unknown]
  - Angina pectoris [Unknown]
  - Headache [Unknown]
  - Dyspnoea [Unknown]
  - Dyspnoea [Unknown]
  - Respiration abnormal [Unknown]
  - Nasopharyngitis [Unknown]
